FAERS Safety Report 9028293 (Version 1)
Quarter: 2013Q1

REPORT INFORMATION
  Report Type: Spontaneous
  Country: US (occurrence: None)
  Receive Date: 20130115
  Receipt Date: 20130115
  Transmission Date: 20140127
  Serious: Yes (Other)
  Sender: FDA-Public Use
  Company Number: None

PATIENT
  Age: 81 Year
  Sex: Male
  Weight: 87.54 kg

DRUGS (1)
  1. MYRBETRIG 25MG ASTELLAS [Suspect]
     Dosage: 1 TABLET
     Dates: start: 20121227

REACTIONS (3)
  - Dizziness [None]
  - Pruritus [None]
  - Pollakiuria [None]
